FAERS Safety Report 19118203 (Version 1)
Quarter: 2021Q2

REPORT INFORMATION
  Report Type: Spontaneous
  Country: FR (occurrence: FR)
  Receive Date: 20210409
  Receipt Date: 20210409
  Transmission Date: 20210717
  Serious: Yes (Other)
  Sender: FDA-Public Use
  Company Number: FR-PURDUE-USA-2020-0163433

PATIENT
  Age: 36 Year
  Sex: Male

DRUGS (2)
  1. NON?PMN BUPRENORPHINE [Suspect]
     Active Substance: BUPRENORPHINE
     Indication: PRODUCT USED FOR UNKNOWN INDICATION
     Dosage: UNK
     Route: 042
  2. NON?PMN BUPRENORPHINE [Suspect]
     Active Substance: BUPRENORPHINE
     Dosage: UNK
     Route: 013

REACTIONS (8)
  - Peripheral artery thrombosis [Unknown]
  - Brachial artery entrapment syndrome [Unknown]
  - Hepatitis C [Unknown]
  - Prostatitis [Unknown]
  - Urinary tract infection [Unknown]
  - Substance dependence [Unknown]
  - Intentional product use issue [Recovered/Resolved]
  - Venous thrombosis limb [Unknown]
